FAERS Safety Report 19012436 (Version 3)
Quarter: 2022Q1

REPORT INFORMATION
  Report Type: Report from Study
  Country: US (occurrence: US)
  Receive Date: 20210315
  Receipt Date: 20220107
  Transmission Date: 20220423
  Serious: No
  Sender: FDA-Public Use
  Company Number: US-NOVARTISTESTPH-NVSC2021US051713

PATIENT
  Age: 64 Year
  Sex: Male

DRUGS (2)
  1. ENTRESTO [Suspect]
     Active Substance: SACUBITRIL\VALSARTAN
     Indication: Product used for unknown indication
     Dosage: 1 DOSAGE FORM, BID (49/51 MG BID)
     Route: 048
     Dates: start: 202010
  2. TRINTELLIX [Suspect]
     Active Substance: VORTIOXETINE HYDROBROMIDE
     Indication: Product used for unknown indication
     Dosage: UNK
     Route: 065

REACTIONS (15)
  - Throat clearing [Unknown]
  - Weight fluctuation [Unknown]
  - Hyponatraemia [Unknown]
  - Sciatica [Unknown]
  - Rhinorrhoea [Unknown]
  - Rhinorrhoea [Unknown]
  - Nasal congestion [Unknown]
  - COVID-19 [Unknown]
  - Asthenia [Unknown]
  - Pollakiuria [Unknown]
  - Asthenia [Unknown]
  - Cough [Unknown]
  - Cough [Unknown]
  - Ejection fraction decreased [Unknown]
  - Drug ineffective [Unknown]

NARRATIVE: CASE EVENT DATE: 20211231
